FAERS Safety Report 8825667 (Version 2)
Quarter: 2014Q3

REPORT INFORMATION
  Report Type: Spontaneous
  Country: US (occurrence: US)
  Receive Date: 20121004
  Receipt Date: 20140821
  Transmission Date: 20150326
  Serious: Yes (Hospitalization, Other)
  Sender: FDA-Public Use
  Company Number: US-009507513-2010SP014804

PATIENT
  Sex: Female

DRUGS (1)
  1. NUVARING [Suspect]
     Active Substance: ETHINYL ESTRADIOL\ETONOGESTREL
     Indication: CONTRACEPTION
     Dates: start: 20081024, end: 20090308

REACTIONS (10)
  - Pulmonary embolism [Recovered/Resolved]
  - Anxiety [Unknown]
  - Human papilloma virus test positive [Unknown]
  - Musculoskeletal chest pain [Unknown]
  - Depression [Unknown]
  - Palpitations [Unknown]
  - Chest pain [Unknown]
  - Hydronephrosis [Recovered/Resolved]
  - Cervical dysplasia [Unknown]
  - Dizziness [Unknown]

NARRATIVE: CASE EVENT DATE: 200811
